FAERS Safety Report 4943467-2 (Version None)
Quarter: 2006Q1

REPORT INFORMATION
  Report Type: 
  Country: None (occurrence: None)
  Receive Date: 20060309
  Receipt Date: 20060227
  Transmission Date: 20060701
  Serious: Yes (Other)
  Sender: FDA-Public Use
  Company Number: 2006028946

PATIENT
  Age: 70 Year
  Sex: Female
  Weight: 122.4712 kg

DRUGS (4)
  1. CELEBREX [Suspect]
     Indication: ARTHRITIS
  2. COZAAR [Concomitant]
  3. TENORMIN [Concomitant]
  4. SYNTHROID [Concomitant]

REACTIONS (6)
  - BLOOD CREATININE ABNORMAL [None]
  - BONE LESION EXCISION [None]
  - JOINT SWELLING [None]
  - KIDNEY SMALL [None]
  - ROTATOR CUFF REPAIR [None]
  - TENDON RUPTURE [None]
